FAERS Safety Report 18034445 (Version 8)
Quarter: 2022Q4

REPORT INFORMATION
  Report Type: Spontaneous
  Country: US (occurrence: US)
  Receive Date: 20200716
  Receipt Date: 20221018
  Transmission Date: 20230113
  Serious: Yes (Disabling, Other)
  Sender: FDA-Public Use
  Company Number: US-PURDUE-USA-2020-0157386

PATIENT
  Sex: Male

DRUGS (8)
  1. OXYCONTIN [Suspect]
     Active Substance: OXYCODONE HYDROCHLORIDE
     Indication: Pain management
     Dosage: 20 MG, BID
     Route: 048
  2. OXYCODONE HYDROCHLORIDE [Suspect]
     Active Substance: OXYCODONE HYDROCHLORIDE
     Indication: Product used for unknown indication
     Dosage: UNKNOWN
     Route: 048
  3. OXYCODONE HYDROCHLORIDE [Suspect]
     Active Substance: OXYCODONE HYDROCHLORIDE
     Indication: Product used for unknown indication
     Dosage: UNKNOWN
     Route: 048
  4. HYDROCODONE BITARTRATE [Suspect]
     Active Substance: HYDROCODONE BITARTRATE
     Indication: Pain management
     Dosage: 10 MG, UNKNOWN
     Route: 065
  5. ACETAMINOPHEN\OXYCODONE HYDROCHLORIDE [Suspect]
     Active Substance: ACETAMINOPHEN\OXYCODONE HYDROCHLORIDE
     Indication: Product used for unknown indication
     Dosage: 10/325  QID PRN
     Route: 048
  6. HYDROCODONE BITARTRATE AND ACETAMINOPHEN [Suspect]
     Active Substance: ACETAMINOPHEN\HYDROCODONE BITARTRATE
     Indication: Arthralgia
     Dosage: UNKNOWN, Q12H PRN
     Route: 048
  7. ACETAMINOPHEN\OXYCODONE HYDROCHLORIDE\OXYCODONE TEREPHTHALATE [Suspect]
     Active Substance: ACETAMINOPHEN\OXYCODONE HYDROCHLORIDE\OXYCODONE TEREPHTHALATE
     Indication: Pain management
     Dosage: 10 MG, UNKNOWN
     Route: 065
  8. DONEPEZIL [Concomitant]
     Active Substance: DONEPEZIL
     Indication: Dementia Alzheimer^s type
     Dosage: 5 MG, DAILY(ONCE A DAY IN EVENING)
     Route: 048

REACTIONS (18)
  - Disability [Unknown]
  - Multiple sclerosis [Unknown]
  - Limb operation [Unknown]
  - Cardiac disorder [Unknown]
  - Myocardial infarction [Unknown]
  - Drug dependence [Unknown]
  - Drug withdrawal syndrome [Unknown]
  - Learning disability [Unknown]
  - Mental disorder [Unknown]
  - Amnesia [Unknown]
  - Nervous system disorder [Unknown]
  - Insomnia [Unknown]
  - Depression [Unknown]
  - Nerve injury [Unknown]
  - Cerebral disorder [Unknown]
  - Emotional distress [Unknown]
  - Poor peripheral circulation [Unknown]
  - Unevaluable event [Unknown]
